FAERS Safety Report 7804736-1 (Version None)
Quarter: 2011Q4

REPORT INFORMATION
  Report Type: 
  Country: None (occurrence: None)
  Receive Date: 20111010
  Receipt Date: 20110929
  Transmission Date: 20120403
  Serious: Yes (Hospitalization, Other)
  Sender: FDA-Public Use
  Company Number: LU-NOVOPROD-336318

PATIENT

DRUGS (8)
  1. NOVOTHYRAL [Concomitant]
     Indication: HYPOTHYROIDISM
     Dosage: 75 MG, QD
     Route: 048
     Dates: start: 19950101
  2. NOBITEN                            /01339101/ [Concomitant]
     Indication: HYPERTENSION
     Dosage: 5 MG DAILY
     Route: 048
  3. ASAFLOW [Concomitant]
     Dosage: 160 MG, QD
     Route: 048
     Dates: start: 20040101
  4. METFORMIN HCL [Concomitant]
     Indication: DIABETES MELLITUS
     Dosage: 850 MG, TID
     Dates: start: 20080711
  5. VICTOZA [Suspect]
     Indication: TYPE 2 DIABETES MELLITUS
     Dosage: 0.6 MG, QD
     Route: 058
     Dates: start: 20101011, end: 20110830
  6. LIPITOR [Concomitant]
     Indication: DYSLIPIDAEMIA
     Dosage: 10 MG, UNK
     Route: 048
     Dates: start: 20080711
  7. IRBESARTAN AND HYDROCHLOROTHIAZIDE [Concomitant]
     Dosage: 300/12.5 MG DAILY
     Route: 048
  8. LANTUS [Concomitant]
     Indication: DIABETES MELLITUS
     Dosage: 26 IU, QD
     Route: 058
     Dates: start: 20080711

REACTIONS (1)
  - PANCREATITIS ACUTE [None]
